FAERS Safety Report 20099155 (Version 2)
Quarter: 2021Q4

REPORT INFORMATION
  Report Type: Spontaneous
  Country: CO (occurrence: CO)
  Receive Date: 20211122
  Receipt Date: 20211215
  Transmission Date: 20220303
  Serious: Yes (Hospitalization)
  Sender: FDA-Public Use
  Company Number: CO-BIOMARINAP-CO-2021-139774

PATIENT
  Age: 23 Year
  Sex: Male
  Weight: 31 kg

DRUGS (1)
  1. VIMIZIM [Suspect]
     Active Substance: ELOSULFASE ALFA
     Indication: Mucopolysaccharidosis IV
     Dosage: 62 MILLIGRAM, QW
     Route: 042
     Dates: start: 20170401

REACTIONS (2)
  - Blood pressure increased [Unknown]
  - Asthma [Unknown]

NARRATIVE: CASE EVENT DATE: 20211116
